FAERS Safety Report 15758863 (Version 1)
Quarter: 2018Q4

REPORT INFORMATION
  Report Type: Spontaneous
  Country: PL (occurrence: PL)
  Receive Date: 20181225
  Receipt Date: 20181225
  Transmission Date: 20190205
  Serious: Yes (Other)
  Sender: FDA-Public Use
  Company Number: PHHY2018PL193792

PATIENT
  Age: 42 Year
  Sex: Female

DRUGS (1)
  1. INTERFERON BETA-1B [Suspect]
     Active Substance: INTERFERON BETA-1B
     Indication: MULTIPLE SCLEROSIS
     Dosage: UNK
     Route: 058

REACTIONS (4)
  - Hypoaesthesia [Unknown]
  - Joint instability [Unknown]
  - Influenza like illness [Unknown]
  - Arthralgia [Unknown]

NARRATIVE: CASE EVENT DATE: 20181204
